FAERS Safety Report 6582061-7 (Version None)
Quarter: 2010Q1

REPORT INFORMATION
  Report Type: 
  Country: None (occurrence: None)
  Receive Date: 20100215
  Receipt Date: 20100204
  Transmission Date: 20100710
  Serious: Yes (Death, Life-Threatening, Hospitalization, Other)
  Sender: FDA-Public Use
  Company Number: GB-BAXTER-2010BH002574

PATIENT
  Age: 41 Year
  Sex: Male
  Weight: 70 kg

DRUGS (17)
  1. METRONIDAZOLE [Suspect]
     Indication: PNEUMONIA ASPIRATION
     Route: 042
     Dates: start: 20051221, end: 20051230
  2. CIPROFLOXACIN [Suspect]
     Indication: PNEUMONIA ASPIRATION
     Route: 042
     Dates: start: 20051223, end: 20051230
  3. AMITRIPTYLINE HCL [Concomitant]
     Indication: DRUG USE FOR UNKNOWN INDICATION
     Route: 065
  4. AUGMENTIN '125' [Concomitant]
     Indication: PNEUMONIA ASPIRATION
     Route: 042
     Dates: start: 20051221
  5. BACLOFEN [Concomitant]
     Indication: DRUG USE FOR UNKNOWN INDICATION
     Route: 065
     Dates: start: 20051221
  6. GENTAMICIN [Concomitant]
     Indication: DRUG USE FOR UNKNOWN INDICATION
     Route: 042
  7. LACTULOSE [Concomitant]
     Indication: DRUG USE FOR UNKNOWN INDICATION
     Route: 065
  8. LAMOTRIGINE [Concomitant]
     Indication: DRUG USE FOR UNKNOWN INDICATION
     Route: 065
  9. LANSOPRAZOLE [Concomitant]
     Indication: DRUG USE FOR UNKNOWN INDICATION
     Route: 065
  10. LORAZEPAM [Concomitant]
     Indication: DRUG USE FOR UNKNOWN INDICATION
     Route: 065
  11. PARACETAMOL [Concomitant]
     Indication: DRUG USE FOR UNKNOWN INDICATION
     Route: 065
  12. SENNA [Concomitant]
     Indication: DRUG USE FOR UNKNOWN INDICATION
     Route: 065
  13. VANCOMYCIN [Concomitant]
     Indication: DRUG USE FOR UNKNOWN INDICATION
     Route: 042
     Dates: start: 20051201, end: 20060109
  14. CORSODYL [Concomitant]
     Indication: DRUG USE FOR UNKNOWN INDICATION
     Route: 061
  15. CORSODYL [Concomitant]
     Route: 061
  16. AQUEOUS CREAM [Concomitant]
     Indication: DRUG USE FOR UNKNOWN INDICATION
     Route: 061
  17. HYDROCORTISONE [Concomitant]
     Indication: DRUG USE FOR UNKNOWN INDICATION
     Route: 061

REACTIONS (6)
  - DEATH [None]
  - DISSEMINATED INTRAVASCULAR COAGULATION [None]
  - LIVER FUNCTION TEST ABNORMAL [None]
  - MELAENA [None]
  - PANCYTOPENIA [None]
  - PYREXIA [None]
